FAERS Safety Report 4650931-2 (Version None)
Quarter: 2005Q2

REPORT INFORMATION
  Report Type: 
  Country: None (occurrence: None)
  Receive Date: 20050503
  Receipt Date: 20050419
  Transmission Date: 20051028
  Serious: Yes (Other)
  Sender: FDA-Public Use
  Company Number: US-GLAXOSMITHKLINE-A0554787A

PATIENT
  Age: 26 Year
  Sex: Female
  Weight: 75 kg

DRUGS (3)
  1. NICORETTE [Suspect]
     Dosage: 4MG UNKNOWN
     Route: 002
     Dates: start: 20050301, end: 20050418
  2. SEROQUEL [Concomitant]
     Route: 048
  3. PROZAC [Concomitant]
     Route: 048
     Dates: end: 20050301

REACTIONS (10)
  - ABDOMINAL DISCOMFORT [None]
  - CHEST PAIN [None]
  - DIZZINESS [None]
  - HAEMATEMESIS [None]
  - HEART RATE INCREASED [None]
  - INSOMNIA [None]
  - NAUSEA [None]
  - ORAL MUCOSAL EXFOLIATION [None]
  - TREMOR [None]
  - VOMITING [None]
